FAERS Safety Report 6751993-9 (Version None)
Quarter: 2010Q2

REPORT INFORMATION
  Report Type: 
  Country: None (occurrence: None)
  Receive Date: 20100602
  Receipt Date: 20100525
  Transmission Date: 20101027
  Serious: Yes (Hospitalization)
  Sender: FDA-Public Use
  Company Number: US-AMGEN-KDC414153

PATIENT
  Sex: Female

DRUGS (11)
  1. ROMIPLOSTIM [Suspect]
     Indication: MYELODYSPLASTIC SYNDROME
     Route: 058
     Dates: start: 20091222
  2. ROMIPLOSTIM - STUDY PROCEDURE [Suspect]
  3. ASPIRIN [Concomitant]
  4. DEFEROXAMINE MESYLATE [Concomitant]
  5. CEFUROXIME [Concomitant]
     Route: 048
  6. PREDNISONE [Concomitant]
     Route: 048
  7. PENTASA [Concomitant]
     Route: 048
  8. MULTI-VITAMINS [Concomitant]
     Route: 048
  9. CALCIUM WITH VITAMIN D [Concomitant]
     Route: 048
  10. VITAMIN B6 [Concomitant]
     Route: 048
  11. FOLIC ACID [Concomitant]
     Route: 048

REACTIONS (1)
  - ISCHAEMIC STROKE [None]
